FAERS Safety Report 20828655 (Version 1)
Quarter: 2022Q2

REPORT INFORMATION
  Report Type: Report from Study
  Country: US (occurrence: US)
  Receive Date: 20220513
  Receipt Date: 20220513
  Transmission Date: 20220720
  Serious: Yes (Hospitalization)
  Sender: FDA-Public Use
  Company Number: US-INCYTE CORPORATION-2022IN004581

PATIENT

DRUGS (1)
  1. JAKAFI [Suspect]
     Active Substance: RUXOLITINIB
     Dosage: 5 MILLIGRAM, BID AS DIRECTED, ON DAYS 1-28 OF YOUR CHEMOTHERAPY CYCLE
     Route: 065

REACTIONS (2)
  - Ill-defined disorder [Unknown]
  - Speech disorder [Unknown]
